FAERS Safety Report 18761790 (Version 3)
Quarter: 2021Q1

REPORT INFORMATION
  Report Type: Spontaneous
  Country: US (occurrence: US)
  Receive Date: 20210120
  Receipt Date: 20210219
  Transmission Date: 20210419
  Serious: Yes (Hospitalization, Other)
  Sender: FDA-Public Use
  Company Number: US-ASTRAZENECA-2021A006470

PATIENT
  Age: 26900 Day
  Sex: Male
  Weight: 81.6 kg

DRUGS (2)
  1. PULMICORT FLEXHALER [Suspect]
     Active Substance: BUDESONIDE
     Indication: CHRONIC OBSTRUCTIVE PULMONARY DISEASE
     Dosage: 90 MCG,1 PUFF, TWICE A DAY
     Route: 055
  2. PULMICORT FLEXHALER [Suspect]
     Active Substance: BUDESONIDE
     Indication: ASTHMA
     Dosage: 90 MCG,1 PUFF, TWICE A DAY
     Route: 055

REACTIONS (6)
  - Pneumonia [Recovered/Resolved]
  - Intentional device misuse [Unknown]
  - Drug dose omission by device [Unknown]
  - COVID-19 [Recovering/Resolving]
  - Drug delivery system issue [Unknown]
  - Pulmonary function test decreased [Unknown]

NARRATIVE: CASE EVENT DATE: 20201213
